FAERS Safety Report 12993545 (Version 7)
Quarter: 2018Q2

REPORT INFORMATION
  Report Type: Spontaneous
  Country: FR (occurrence: FR)
  Receive Date: 20161202
  Receipt Date: 20180521
  Transmission Date: 20180711
  Serious: Yes (Hospitalization)
  Sender: FDA-Public Use
  Company Number: FR-CELGENEUS-FRA-2016100815

PATIENT
  Age: 71 Year
  Sex: Male
  Weight: 63 kg

DRUGS (21)
  1. ORACILLINE [Concomitant]
     Active Substance: PENICILLIN V
     Indication: INFECTION PROPHYLAXIS
     Dosage: 1000000 IU
     Route: 048
     Dates: start: 20160722
  2. LEDERFOLINE [Concomitant]
     Active Substance: LEUCOVORIN CALCIUM
     Indication: PROPHYLAXIS
  3. NEXIUM [Concomitant]
     Active Substance: ESOMEPRAZOLE MAGNESIUM
     Indication: GASTROOESOPHAGEAL REFLUX PROPHYLAXIS
     Dosage: 160MG
     Route: 048
     Dates: start: 20160902
  4. FOLIC ACID. [Concomitant]
     Active Substance: FOLIC ACID
     Indication: PRODUCT USED FOR UNKNOWN INDICATION
     Route: 065
  5. ZELITREX [Concomitant]
     Active Substance: VALACYCLOVIR HYDROCHLORIDE
     Indication: VIRAL INFECTION
     Dosage: 500MG
     Route: 048
     Dates: start: 20160722
  6. KARDEGIC [Concomitant]
     Active Substance: ASPIRIN DL-LYSINE
     Indication: PROPHYLAXIS
  7. TRAMADOL. [Concomitant]
     Active Substance: TRAMADOL
     Indication: PROPHYLAXIS
  8. AUGMENTIN [Concomitant]
     Active Substance: AMOXICILLIN\CLAVULANATE POTASSIUM
     Indication: PYREXIA
     Route: 048
     Dates: start: 20160826
  9. EPREX [Concomitant]
     Active Substance: ERYTHROPOIETIN
     Indication: RENAL FAILURE
     Dosage: 40000IU
     Route: 058
     Dates: start: 20160805
  10. REPAGLINIDE. [Concomitant]
     Active Substance: REPAGLINIDE
     Indication: HYPERGLYCAEMIA
     Dosage: 12MG
     Route: 048
     Dates: start: 20160812
  11. REVLIMID [Suspect]
     Active Substance: LENALIDOMIDE
     Indication: PLASMA CELL MYELOMA
     Dosage: 10MG
     Route: 048
     Dates: start: 20160722
  12. KARDEGIC [Concomitant]
     Active Substance: ASPIRIN DL-LYSINE
     Indication: DEEP VEIN THROMBOSIS
     Dosage: 75MG
     Route: 048
     Dates: start: 20160722
  13. ALLOPURINOL. [Concomitant]
     Active Substance: ALLOPURINOL
     Indication: GOUT
     Dosage: 200MG
     Route: 048
     Dates: start: 20160812
  14. EPREX [Concomitant]
     Active Substance: ERYTHROPOIETIN
     Dosage: 30000IU
     Route: 058
     Dates: start: 20160916
  15. BACTRIM [Concomitant]
     Active Substance: SULFAMETHOXAZOLE\TRIMETHOPRIM
     Indication: INFECTION PROPHYLAXIS
     Dosage: 800MG
     Route: 048
     Dates: start: 20160722
  16. ZELITREX [Concomitant]
     Active Substance: VALACYCLOVIR HYDROCHLORIDE
     Indication: PROPHYLAXIS
  17. LEDERFOLINE [Concomitant]
     Active Substance: LEUCOVORIN CALCIUM
     Indication: ADVERSE DRUG REACTION
     Dosage: 25MG
     Route: 048
     Dates: start: 20160722
  18. ZOMETA [Concomitant]
     Active Substance: ZOLEDRONIC ACID
     Indication: PROPHYLAXIS
     Dosage: 3.3MG
     Route: 048
     Dates: start: 20160812
  19. TRAMADOL. [Concomitant]
     Active Substance: TRAMADOL
     Indication: BONE PAIN
     Dosage: 200MG
     Route: 048
     Dates: start: 20160826
  20. DEXAMETHASONE. [Suspect]
     Active Substance: DEXAMETHASONE
     Indication: PLASMA CELL MYELOMA
     Dosage: 40MG
     Route: 048
     Dates: start: 20160722, end: 20160916
  21. COLCHICINE. [Concomitant]
     Active Substance: COLCHICINE
     Indication: GOUT
     Dosage: 1MG
     Route: 048
     Dates: start: 20160818

REACTIONS (7)
  - Pyrexia [Recovered/Resolved]
  - Depression [Recovered/Resolved]
  - Thrombocytopenia [Recovered/Resolved]
  - Neutropenia [Recovered/Resolved]
  - Tremor [Not Recovered/Not Resolved]
  - Atrial flutter [Recovered/Resolved]
  - Diabetes mellitus [Not Recovered/Not Resolved]

NARRATIVE: CASE EVENT DATE: 20160813
